FAERS Safety Report 8779087 (Version 2)
Quarter: 2013Q4

REPORT INFORMATION
  Report Type: Spontaneous
  Country: US (occurrence: US)
  Receive Date: 20120912
  Receipt Date: 20131105
  Transmission Date: 20140711
  Serious: Yes (Other)
  Sender: FDA-Public Use
  Company Number: US-009507513-1007USA01996

PATIENT
  Age: 46 Year
  Sex: Male

DRUGS (13)
  1. ISENTRESS [Suspect]
     Dosage: UNK
     Route: 048
  2. FUZEON [Suspect]
     Route: 058
  3. INTELENCE [Suspect]
     Route: 048
  4. LAMIVUDINE [Suspect]
     Route: 048
  5. VIREAD [Suspect]
     Route: 048
  6. ACYCLOVIR [Concomitant]
  7. SULFAMETHOXAZOLE (+) TRIMETHOPRIM [Concomitant]
  8. FOLIC ACID [Concomitant]
  9. HYDROXYZINE [Concomitant]
  10. TEMAZEPAM [Concomitant]
  11. VITAMIN E [Concomitant]
  12. ZOPICLONE [Concomitant]
  13. FENOFIBRATE [Concomitant]

REACTIONS (7)
  - Hepatic steatosis [Unknown]
  - Diagnostic aspiration [Unknown]
  - Lymphadenopathy [Unknown]
  - Alanine aminotransferase increased [Unknown]
  - Aspartate aminotransferase increased [Unknown]
  - Hepatic enzyme increased [Unknown]
  - Hepatitis [Unknown]
